FAERS Safety Report 10196555 (Version 1)
Quarter: 2014Q2

REPORT INFORMATION
  Report Type: Spontaneous
  Country: US (occurrence: US)
  Receive Date: 20140527
  Receipt Date: 20140527
  Transmission Date: 20141212
  Serious: No
  Sender: FDA-Public Use
  Company Number: US-PFIZER INC-2014141687

PATIENT
  Age: 57 Year
  Sex: Female
  Weight: 72.56 kg

DRUGS (2)
  1. GABAPENTIN [Suspect]
     Indication: DELUSIONAL PERCEPTION
     Dosage: 100 MG, 2X/DAY
     Dates: start: 2014, end: 2014
  2. GABAPENTIN [Suspect]
     Dosage: 100 MG, DAILY
     Dates: start: 2014

REACTIONS (1)
  - Ear disorder [Recovering/Resolving]
